FAERS Safety Report 9524377 (Version 1)
Quarter: 2013Q1

REPORT INFORMATION
  Report Type: Spontaneous
  Country: US (occurrence: None)
  Receive Date: 20130305
  Receipt Date: 20130305
  Transmission Date: 20140127
  Serious: Yes (Other)
  Sender: FDA-Public Use
  Company Number: 163-21880-12022175

PATIENT
  Age: 72 Year
  Sex: Male
  Weight: 79 kg

DRUGS (24)
  1. REVLIMID (LENALIDOMIDE) (25 MILLIGRAM, CAPSULES) [Suspect]
     Indication: PLASMA CELL MYELOMA
     Dosage: 25 MG, DAILY FOR 21 DAYS, 7 DAY BREAK, PO
     Route: 048
     Dates: start: 20100505
  2. DEXAMETHASONE (DEXAMETHASONE) [Concomitant]
  3. AMBIEN CR (ZOLPIDEM TARTRATE) [Concomitant]
  4. ZOMETA (ZOLEDRONIC ACID) [Concomitant]
  5. MELPHALAN [Concomitant]
  6. AMIFOSTINE (AMIFOSTINE) [Concomitant]
  7. PIMECROLIMUS (PIMECROLIMUS) [Concomitant]
  8. COLCHICINE (COLCHICINE) [Concomitant]
  9. ALBUTEROL (SALBUTAMOL) [Concomitant]
  10. ACYCLOVIR (ACICLOVIR) (ACICLOVIR) [Concomitant]
  11. ASTELIN (AZELASTINE HYDROCHLORIDE) [Concomitant]
  12. CITALOPRAM (CITALOPRAM0 [Concomitant]
  13. CLINDAMYCIN (CLINDAMYCIN) [Concomitant]
  14. HYDROXYZINE (HYDROXYZINE) [Concomitant]
  15. OMEPRAZOLE (OMEPRAZOLE) [Concomitant]
  16. ZOLPIDEM (ZOLPIDEM) [Concomitant]
  17. ASPIRIN (ACETYLSALICYLIC ACID) [Concomitant]
  18. CUREL (CUREL) [Concomitant]
  19. VITAMINS [Concomitant]
  20. MINERAL SUPPLEMENT (MINERAL SUPPLEMENTS) [Concomitant]
  21. MIRALAX [Concomitant]
  22. SIMETHICONE (DIMETICONE, ACTIVATED) [Concomitant]
  23. TUSSIN (GUAIFENESIN) [Concomitant]
  24. ZYRTEC (CETIRIZINE HYDROCHLORIDE) [Concomitant]

REACTIONS (1)
  - Acute febrile neutrophilic dermatosis [None]
